FAERS Safety Report 8347331-0 (Version None)
Quarter: 2012Q2

REPORT INFORMATION
  Report Type: 
  Country: None (occurrence: None)
  Receive Date: 20120509
  Receipt Date: 20120430
  Transmission Date: 20120825
  Serious: Yes (Hospitalization)
  Sender: FDA-Public Use
  Company Number: KR-SANOFI-AVENTIS-2012SA030824

PATIENT
  Age: 65 Year
  Sex: Male

DRUGS (7)
  1. PLAVIX [Suspect]
     Indication: CEREBELLAR INFARCTION
     Route: 065
  2. ASPIRIN [Concomitant]
     Indication: CEREBELLAR INFARCTION
  3. CEFOPERAZONE SODIUM [Concomitant]
  4. CLINDAMYCIN [Concomitant]
  5. SERUMLIPIDREDUCING AGENTS [Concomitant]
  6. TEICOPLANIN [Concomitant]
  7. VALPROIC ACID [Concomitant]
     Indication: CEREBELLAR INFARCTION

REACTIONS (4)
  - ACQUIRED HAEMOPHILIA [None]
  - SOFT TISSUE HAEMORRHAGE [None]
  - ACTIVATED PARTIAL THROMBOPLASTIN TIME PROLONGED [None]
  - COAGULATION FACTOR VIII LEVEL DECREASED [None]
